FAERS Safety Report 11821904 (Version 1)
Quarter: 2015Q4

REPORT INFORMATION
  Report Type: Spontaneous
  Country: US (occurrence: US)
  Receive Date: 20151210
  Receipt Date: 20151210
  Transmission Date: 20160305
  Serious: No
  Sender: FDA-Public Use
  Company Number: US-JNJFOC-20150700915

PATIENT
  Age: 71 Year
  Sex: Female

DRUGS (7)
  1. MAGNESIUM [Concomitant]
     Active Substance: MAGNESIUM
  2. ATORVASTATIN [Concomitant]
     Active Substance: ATORVASTATIN
  3. IMBRUVICA [Suspect]
     Active Substance: IBRUTINIB
     Indication: CHRONIC LYMPHOCYTIC LEUKAEMIA
     Route: 048
     Dates: start: 20140925
  4. LEVOTHYROXINE. [Concomitant]
     Active Substance: LEVOTHYROXINE
  5. LISINOPRIL. [Concomitant]
     Active Substance: LISINOPRIL
  6. ACYCLOVIR. [Concomitant]
     Active Substance: ACYCLOVIR
  7. ZEBETA [Concomitant]
     Active Substance: BISOPROLOL FUMARATE

REACTIONS (5)
  - Rhinorrhoea [Unknown]
  - Dermatitis bullous [Not Recovered/Not Resolved]
  - Sneezing [Unknown]
  - Cough [Not Recovered/Not Resolved]
  - Pneumonia [Unknown]

NARRATIVE: CASE EVENT DATE: 2015
